FAERS Safety Report 16767330 (Version 1)
Quarter: 2019Q4

REPORT INFORMATION
  Report Type: Spontaneous
  Country: US (occurrence: US)
  Receive Date: 20190903
  Receipt Date: 20190903
  Transmission Date: 20200122
  Serious: Yes (Other)
  Sender: FDA-Public Use
  Company Number: None

PATIENT
  Age: 41 Year
  Sex: Female
  Weight: 71.1 kg

DRUGS (12)
  1. ESTRADIOL VALERATE. [Suspect]
     Active Substance: ESTRADIOL VALERATE
     Indication: HORMONE REPLACEMENT THERAPY
     Dosage: ?          QUANTITY:5 INJECTION(S);OTHER FREQUENCY:EVERY THREE WEEKS;OTHER ROUTE:INJECTION INTO ARM?
     Dates: start: 20190821, end: 20190821
  2. CALCIUM [Concomitant]
     Active Substance: CALCIUM
  3. NUTRAFOL [Concomitant]
  4. TESTERONE [Concomitant]
     Active Substance: TESTOSTERONE
  5. PROGESTERONE. [Concomitant]
     Active Substance: PROGESTERONE
  6. IRON [Concomitant]
     Active Substance: IRON
  7. PRIMROSE OIL [Concomitant]
  8. CYTOMEL [Concomitant]
     Active Substance: LIOTHYRONINE SODIUM
  9. PROBIOTIC [Concomitant]
     Active Substance: PROBIOTICS NOS
  10. SYNTHROID [Concomitant]
     Active Substance: LEVOTHYROXINE SODIUM
  11. MULTIVITAMIN [Concomitant]
     Active Substance: VITAMINS
  12. JOINT SUPPLEMENT [Concomitant]

REACTIONS (7)
  - Vision blurred [None]
  - Feeling abnormal [None]
  - Dizziness [None]
  - Mood swings [None]
  - Hypersomnia [None]
  - Headache [None]
  - Diplopia [None]

NARRATIVE: CASE EVENT DATE: 20190821
